FAERS Safety Report 6899135-3 (Version None)
Quarter: 2010Q3

REPORT INFORMATION
  Report Type: 
  Country: None (occurrence: None)
  Receive Date: 20100802
  Receipt Date: 20080108
  Transmission Date: 20110219
  Serious: No
  Sender: FDA-Public Use
  Company Number: US-PFIZER INC-2008003033

PATIENT
  Sex: Female

DRUGS (2)
  1. LYRICA [Suspect]
     Dates: start: 20060301
  2. CELEXA [Concomitant]

REACTIONS (1)
  - HYPOAESTHESIA [None]
